FAERS Safety Report 10025576 (Version 1)
Quarter: 2014Q1

REPORT INFORMATION
  Report Type: Spontaneous
  Country: US (occurrence: None)
  Receive Date: 20140314
  Receipt Date: 20140314
  Transmission Date: 20141002
  Serious: Yes (Hospitalization, Other)
  Sender: FDA-Public Use
  Company Number: DEP_01934_2014

PATIENT
  Age: 55 Year
  Sex: Male

DRUGS (14)
  1. GABAPENTIN [Suspect]
     Indication: NEURALGIA
  2. GABAPENTIN [Suspect]
     Indication: OFF LABEL USE
  3. CLOPIDOGREL [Concomitant]
  4. AMLODIPINE [Concomitant]
  5. HYDRALAZINE [Concomitant]
  6. METOPROLOL [Concomitant]
  7. CLONIDINE [Concomitant]
  8. ATORVASTATIN [Concomitant]
  9. OXYCODONE [Concomitant]
  10. HYDROMORPHONE [Concomitant]
  11. SEVELAMER [Concomitant]
  12. LANTHANUM CARBONATE [Concomitant]
  13. EPOETIN [Concomitant]
  14. INSULIN GLARGINE [Concomitant]

REACTIONS (9)
  - Tremor [None]
  - Lethargy [None]
  - Mental status changes [None]
  - Confusional state [None]
  - Hypotension [None]
  - Localised infection [None]
  - Myoclonus [None]
  - Neurotoxicity [None]
  - Condition aggravated [None]
